FAERS Safety Report 26001824 (Version 1)
Quarter: 2025Q4

REPORT INFORMATION
  Report Type: Spontaneous
  Country: CA (occurrence: CA)
  Receive Date: 20251105
  Receipt Date: 20251105
  Transmission Date: 20260118
  Serious: Yes (Other)
  Sender: PFIZER
  Company Number: CA-PFIZER INC-202500205120

PATIENT
  Age: 75 Year
  Sex: Female
  Weight: 63 kg

DRUGS (5)
  1. IXIFI [Suspect]
     Active Substance: INFLIXIMAB-QBTX
     Indication: Ankylosing spondylitis
     Dosage: 300MG, FIRST TREATMENT, (1 DF, EVERY 6 WEEKS; W 0,2,6)
     Route: 042
     Dates: start: 20251016, end: 20251016
  2. IXIFI [Suspect]
     Active Substance: INFLIXIMAB-QBTX
     Dosage: 300 MG, EVERY 6 WEEKS; 2 WEEKS (WEEK2); W 0,2,6
     Route: 042
     Dates: start: 20251030
  3. TRAMADOL HYDROCHLORIDE [Concomitant]
     Active Substance: TRAMADOL HYDROCHLORIDE
     Dosage: UNK
  4. PERINDOPRIL ERBUMINE [Concomitant]
     Active Substance: PERINDOPRIL ERBUMINE
     Dosage: UNK
  5. PROZAC [Concomitant]
     Active Substance: FLUOXETINE HYDROCHLORIDE
     Dosage: UNK

REACTIONS (6)
  - Syncope [Recovered/Resolved]
  - Blood pressure systolic increased [Unknown]
  - Headache [Recovered/Resolved]
  - Diarrhoea [Recovered/Resolved]
  - Off label use [Unknown]
  - Intentional product use issue [Unknown]

NARRATIVE: CASE EVENT DATE: 20251001
